FAERS Safety Report 8533351-X (Version None)
Quarter: 2012Q3

REPORT INFORMATION
  Report Type: 
  Country: None (occurrence: None)
  Receive Date: 20120717
  Receipt Date: 20120717
  Transmission Date: 20120928
  Serious: No
  Sender: FDA-Public Use
  Company Number: None

PATIENT
  Age: 59 Year
  Sex: Male
  Weight: 73.6 kg

DRUGS (2)
  1. BOCEPREVIR [Suspect]
     Indication: HEPATITIS C
     Dosage: MG PO, MG BID PO
     Route: 048
     Dates: start: 20120410
  2. BOCEPREVIR [Suspect]
     Indication: HEPATITIS C
     Dosage: MG PO, MG BID PO
     Route: 048
     Dates: start: 20120410

REACTIONS (2)
  - LEUKOPENIA [None]
  - NEUTROPENIA [None]
